FAERS Safety Report 23835786 (Version 1)
Quarter: 2024Q2

REPORT INFORMATION
  Report Type: Spontaneous
  Country: EG (occurrence: EG)
  Receive Date: 20240509
  Receipt Date: 20240509
  Transmission Date: 20240716
  Serious: Yes (Hospitalization)
  Sender: FDA-Public Use
  Company Number: EG-002147023-NVSC2024EG093156

PATIENT
  Age: 63 Year
  Sex: Male
  Weight: 100 kg

DRUGS (2)
  1. ENTRESTO [Suspect]
     Active Substance: SACUBITRIL\VALSARTAN
     Indication: Cardiac failure
     Dosage: 100 MG, QD (ONE TABLET ONCE A DAY ORALLY)
     Route: 048
     Dates: start: 20231007
  2. INSULIN HUMAN [Suspect]
     Active Substance: INSULIN HUMAN
     Indication: Diabetes mellitus
     Dosage: 100 IU (20 IU IN THE MORNING AND 10 IU IN THE EVENING)
     Route: 065

REACTIONS (4)
  - Generalised oedema [Recovered/Resolved]
  - Renal disorder [Recovered/Resolved]
  - Oedema [Recovered/Resolved]
  - Off label use [Unknown]

NARRATIVE: CASE EVENT DATE: 20231001
